FAERS Safety Report 10657398 (Version 2)
Quarter: 2020Q2

REPORT INFORMATION
  Report Type: Spontaneous
  Country: FR (occurrence: FR)
  Receive Date: 20141217
  Receipt Date: 20200528
  Transmission Date: 20200713
  Serious: Yes (Disabling)
  Sender: FDA-Public Use
  Company Number: FR-ASTRAZENECA-2014SE95951

PATIENT
  Age: 815 Month
  Sex: Male

DRUGS (15)
  1. INEXIUM [Suspect]
     Active Substance: ESOMEPRAZOLE
     Route: 048
  2. CYMBALTA [Suspect]
     Active Substance: DULOXETINE HYDROCHLORIDE
     Route: 048
  3. AVODART [Suspect]
     Active Substance: DUTASTERIDE
     Route: 048
  4. METOJECT [Suspect]
     Active Substance: METHOTREXATE SODIUM
     Route: 058
  5. LEXOMIL ROCHE [Suspect]
     Active Substance: BROMAZEPAM
     Route: 048
  6. LASILIX [Suspect]
     Active Substance: FUROSEMIDE
     Route: 048
  7. SKENAN [Suspect]
     Active Substance: MORPHINE SULFATE
     Route: 048
  8. TAHOR [Suspect]
     Active Substance: ATORVASTATIN CALCIUM
     Route: 048
     Dates: end: 20140731
  9. CACIT VITAMINE D3 [Suspect]
     Active Substance: CALCIUM CARBONATE\CHOLECALCIFEROL
     Route: 048
  10. PLAQUENIL [Suspect]
     Active Substance: HYDROXYCHLOROQUINE SULFATE
     Route: 048
  11. CORTANCYL [Suspect]
     Active Substance: PREDNISONE
     Route: 048
  12. SALAZOPYRINE [Suspect]
     Active Substance: SULFASALAZINE
     Route: 048
  13. FOSAMAX [Suspect]
     Active Substance: ALENDRONATE SODIUM
     Route: 048
  14. RIVOTRIL [Suspect]
     Active Substance: CLONAZEPAM
     Route: 048
  15. FORLAX [Suspect]
     Active Substance: POLYETHYLENE GLYCOL 4000
     Route: 048

REACTIONS (2)
  - Peripheral sensorimotor neuropathy [Unknown]
  - Gait disturbance [Unknown]

NARRATIVE: CASE EVENT DATE: 201309
